FAERS Safety Report 9716995 (Version 1)
Quarter: 2013Q4

REPORT INFORMATION
  Report Type: Spontaneous
  Country: US (occurrence: US)
  Receive Date: 20131127
  Receipt Date: 20131127
  Transmission Date: 20140711
  Serious: No
  Sender: FDA-Public Use
  Company Number: US-GILEAD-2009-0020281

PATIENT
  Sex: Female
  Weight: 81.19 kg

DRUGS (15)
  1. LETAIRIS [Suspect]
     Indication: PULMONARY ARTERIAL HYPERTENSION
     Route: 048
     Dates: start: 20090126
  2. WARFARIN [Concomitant]
  3. NORVASC [Concomitant]
  4. ATENOLOL [Concomitant]
  5. MEVACOR [Concomitant]
  6. FLONASE NASAL SPRAY [Concomitant]
  7. LEVOTHYROXINE [Concomitant]
  8. ZANTAC [Concomitant]
  9. TYLENOL [Concomitant]
  10. CALCIUM [Concomitant]
  11. GLUCOSAMINE/CONDROITIN [Concomitant]
  12. ASPIRIN [Concomitant]
  13. VITAMIN E [Concomitant]
  14. VITAMIN C [Concomitant]
  15. VITAMIN D [Concomitant]

REACTIONS (2)
  - Local swelling [Unknown]
  - Nasal congestion [Unknown]
